FAERS Safety Report 17294409 (Version 4)
Quarter: 2021Q2

REPORT INFORMATION
  Report Type: Spontaneous
  Country: US (occurrence: US)
  Receive Date: 20200121
  Receipt Date: 20210630
  Transmission Date: 20210716
  Serious: Yes (Other)
  Sender: FDA-Public Use
  Company Number: US-GILEAD-2020-0447109

PATIENT
  Age: 56 Year
  Sex: Male
  Weight: 80.73 kg

DRUGS (43)
  1. TRUVADA [Suspect]
     Active Substance: EMTRICITABINE\TENOFOVIR DISOPROXIL FUMARATE
     Indication: HIV INFECTION
     Dosage: UNK
     Route: 048
     Dates: start: 20080812, end: 201304
  2. STRIBILD [Suspect]
     Active Substance: COBICISTAT\ELVITEGRAVIR\EMTRICITABINE\TENOFOVIR DISOPROXIL FUMARATE
     Dosage: UNK
     Route: 065
     Dates: start: 20150909, end: 201607
  3. VIDEX EC [Concomitant]
     Active Substance: DIDANOSINE
  4. AMOXICILLIN/CLAVULANIC ACID [Concomitant]
     Active Substance: AMOXICILLIN\CLAVULANIC ACID
  5. LOVENOX [LEVOFLOXACIN] [Concomitant]
     Active Substance: LEVOFLOXACIN
  6. NORVIR [Concomitant]
     Active Substance: RITONAVIR
  7. PREZISTA [Concomitant]
     Active Substance: DARUNAVIR ETHANOLATE
  8. ZERIT [Concomitant]
     Active Substance: STAVUDINE
  9. ZITHROMAX [Concomitant]
     Active Substance: AZITHROMYCIN DIHYDRATE
  10. ACETAMINOPHEN. [Concomitant]
     Active Substance: ACETAMINOPHEN
  11. EPIPEN [Concomitant]
     Active Substance: EPINEPHRINE
  12. INTELENCE [Concomitant]
     Active Substance: ETRAVIRINE
  13. VIREAD [Suspect]
     Active Substance: TENOFOVIR DISOPROXIL FUMARATE
     Indication: HIV INFECTION
     Dosage: UNK
     Route: 048
     Dates: start: 20020618, end: 200710
  14. VIREAD [Suspect]
     Active Substance: TENOFOVIR DISOPROXIL FUMARATE
     Dosage: UNK
     Route: 048
     Dates: start: 200806, end: 200808
  15. GEMFIBROZIL. [Concomitant]
     Active Substance: GEMFIBROZIL
  16. LOVAZA [Concomitant]
     Active Substance: OMEGA-3-ACID ETHYL ESTERS
  17. STRIBILD [Suspect]
     Active Substance: COBICISTAT\ELVITEGRAVIR\EMTRICITABINE\TENOFOVIR DISOPROXIL FUMARATE
     Indication: HIV INFECTION
     Dosage: UNK
     Route: 048
     Dates: start: 20150909, end: 201705
  18. DIPHENHYDRAMIN [Concomitant]
     Active Substance: DIPHENHYDRAMINE
  19. FAMOTIDINE. [Concomitant]
     Active Substance: FAMOTIDINE
  20. FENOFIBRATE. [Concomitant]
     Active Substance: FENOFIBRATE
  21. SULFAMETHOXAZOLE;TRIMETHOPRIM [Concomitant]
     Active Substance: SULFAMETHOXAZOLE\TRIMETHOPRIM
  22. AZITHROMYCIN ANHYDROUS. [Concomitant]
     Active Substance: AZITHROMYCIN ANHYDROUS
  23. ACYCLOVIR [ACICLOVIR] [Concomitant]
     Active Substance: ACYCLOVIR
  24. LOPERAMIDE [Concomitant]
     Active Substance: LOPERAMIDE
  25. TRUVADA [Suspect]
     Active Substance: EMTRICITABINE\TENOFOVIR DISOPROXIL FUMARATE
     Dosage: UNK
     Route: 048
     Dates: start: 200808, end: 201509
  26. IBUPROFEN. [Concomitant]
     Active Substance: IBUPROFEN
  27. KALETRA [Concomitant]
     Active Substance: LOPINAVIR\RITONAVIR
  28. PANTOPRAZOLE [Concomitant]
     Active Substance: PANTOPRAZOLE
  29. PREDNISOLONE. [Concomitant]
     Active Substance: PREDNISOLONE
  30. FLUCONAZOLE. [Concomitant]
     Active Substance: FLUCONAZOLE
  31. APAP [Concomitant]
     Active Substance: ACETAMINOPHEN
  32. MULTI VIT [Concomitant]
     Active Substance: VITAMINS
  33. DIDANOSINE. [Concomitant]
     Active Substance: DIDANOSINE
  34. PREDNISONE. [Concomitant]
     Active Substance: PREDNISONE
  35. OXYCODONE [Concomitant]
     Active Substance: OXYCODONE
  36. TRICOR [ADENOSINE] [Concomitant]
     Active Substance: ADENOSINE
  37. EPIVIR [Concomitant]
     Active Substance: LAMIVUDINE
  38. NEURONTIN [Concomitant]
     Active Substance: GABAPENTIN
  39. SULFATRIM [SULFADIAZINE;TRIMETHOPRIM] [Concomitant]
     Active Substance: SULFADIAZINE\TRIMETHOPRIM
  40. HAVRIX [Concomitant]
     Active Substance: HEPATITIS A VIRUS STRAIN HM175 ANTIGEN (FORMALDEHYDE INACTIVATED)
  41. VIDEX [Concomitant]
     Active Substance: DIDANOSINE
  42. TIVICAY [Concomitant]
     Active Substance: DOLUTEGRAVIR SODIUM
  43. TRAMADOL. [Concomitant]
     Active Substance: TRAMADOL

REACTIONS (13)
  - Osteopenia [Not Recovered/Not Resolved]
  - Economic problem [Unknown]
  - Osteoporosis [Not Recovered/Not Resolved]
  - Anhedonia [Unknown]
  - Pain [Unknown]
  - Osteonecrosis [Not Recovered/Not Resolved]
  - Anxiety [Unknown]
  - Bone density decreased [Not Recovered/Not Resolved]
  - Bone loss [Unknown]
  - Chronic kidney disease [Not Recovered/Not Resolved]
  - Emotional distress [Unknown]
  - Tooth loss [Not Recovered/Not Resolved]
  - Chronic kidney disease [Unknown]

NARRATIVE: CASE EVENT DATE: 201609
